FAERS Safety Report 21113740 (Version 2)
Quarter: 2022Q3

REPORT INFORMATION
  Report Type: Spontaneous
  Country: JP (occurrence: JP)
  Receive Date: 20220721
  Receipt Date: 20220915
  Transmission Date: 20221026
  Serious: Yes (Life-Threatening)
  Sender: FDA-Public Use
  Company Number: JP-MOCHP-A20221587

PATIENT
  Sex: Male
  Weight: 64.4 kg

DRUGS (2)
  1. ESCITALOPRAM OXALATE [Suspect]
     Active Substance: ESCITALOPRAM OXALATE
     Indication: Depression
     Dosage: 10 MG, QD
     Route: 048
     Dates: start: 20180404, end: 20200108
  2. ETIZOLAM [Concomitant]
     Active Substance: ETIZOLAM
     Indication: Depression
     Dosage: 0.5 MG, QD
     Route: 048
     Dates: start: 20180905, end: 20200624

REACTIONS (2)
  - Long QT syndrome [Unknown]
  - Malaise [Unknown]

NARRATIVE: CASE EVENT DATE: 20200108
